FAERS Safety Report 5812036-4 (Version None)
Quarter: 2008Q3

REPORT INFORMATION
  Report Type: 
  Country: None (occurrence: None)
  Receive Date: 20080716
  Receipt Date: 20080709
  Transmission Date: 20090109
  Serious: Yes (Hospitalization, Disabling, Other)
  Sender: FDA-Public Use
  Company Number: PHHY2008FR13602

PATIENT
  Sex: Male

DRUGS (1)
  1. VALSARTAN AND HYDROCHLOROTHIAZIDE [Suspect]
     Indication: HYPERTENSION
     Dosage: UNK
     Route: 048
     Dates: end: 20080201

REACTIONS (7)
  - ANTI-GLOMERULAR BASEMENT MEMBRANE ANTIBODY [None]
  - CREATININE RENAL CLEARANCE DECREASED [None]
  - DIALYSIS [None]
  - GOODPASTURE'S SYNDROME [None]
  - PROSTATECTOMY [None]
  - PYREXIA [None]
  - RENAL FAILURE ACUTE [None]
